FAERS Safety Report 7529848-1 (Version None)
Quarter: 2011Q2

REPORT INFORMATION
  Report Type: 
  Country: None (occurrence: None)
  Receive Date: 20110607
  Receipt Date: 20110127
  Transmission Date: 20111010
  Serious: Yes (Other)
  Sender: FDA-Public Use
  Company Number: US-BAYER-201033506NA

PATIENT
  Age: 34 Year
  Sex: Female

DRUGS (5)
  1. ALBUTEROL SULFATE AUTOHALER [Concomitant]
  2. PROAIR HFA [Concomitant]
  3. YASMIN [Suspect]
     Indication: PRODUCT USED FOR UNKNOWN INDICATION
     Dates: start: 20080201, end: 20081001
  4. YAZ [Suspect]
     Indication: PRODUCT USED FOR UNKNOWN INDICATION
     Dates: start: 20080201, end: 20081001
  5. PRENATAL 1+1 [VIT C,CA+,D3,CU+,B12,B9,FE+,B3,B6,RETINOL,B2,B1,VIT E,ZN [Concomitant]
     Dosage: UNK UNK, QD
     Route: 048

REACTIONS (5)
  - CHOLESTEROSIS [None]
  - CHOLELITHIASIS [None]
  - CHOLECYSTECTOMY [None]
  - PAIN [None]
  - CHOLECYSTITIS CHRONIC [None]
